FAERS Safety Report 8215364-0 (Version None)
Quarter: 2012Q1

REPORT INFORMATION
  Report Type: 
  Country: None (occurrence: None)
  Receive Date: 20120316
  Receipt Date: 20120313
  Transmission Date: 20120608
  Serious: Yes (Hospitalization, Congenital Anomaly, Other)
  Sender: FDA-Public Use
  Company Number: US-PFIZER INC-2011159723

PATIENT
  Sex: Female
  Weight: 3 kg

DRUGS (4)
  1. ZOLOFT [Suspect]
     Indication: ANXIETY
     Dosage: 100 MG, DAILY
     Route: 064
     Dates: start: 20050823
  2. ZOLOFT [Suspect]
     Dosage: 150 MG, DAILY
     Route: 064
     Dates: start: 20060711
  3. ZOLOFT [Suspect]
     Dosage: 100 MG, DAILY
     Route: 064
     Dates: start: 20060203
  4. MULTI-VITAMINS [Concomitant]
     Dosage: UNK

REACTIONS (18)
  - MATERNAL EXPOSURE TIMING UNSPECIFIED [None]
  - HEART DISEASE CONGENITAL [None]
  - MITRAL VALVE STENOSIS [None]
  - CONGENITAL AORTIC STENOSIS [None]
  - RIGHT ATRIAL DILATATION [None]
  - PERICARDIAL EFFUSION [None]
  - AORTIC VALVE INCOMPETENCE [None]
  - TRICUSPID VALVE INCOMPETENCE [None]
  - DILATATION VENTRICULAR [None]
  - VENTRICULAR SEPTAL DEFECT [None]
  - ATRIOVENTRICULAR BLOCK FIRST DEGREE [None]
  - ATRIOVENTRICULAR SEPTAL DEFECT [None]
  - CONGENITAL MITRAL VALVE INCOMPETENCE [None]
  - LEFT ATRIAL DILATATION [None]
  - ATRIAL SEPTAL DEFECT [None]
  - TACHYPNOEA [None]
  - SINUS ARRHYTHMIA [None]
  - UPPER RESPIRATORY TRACT INFECTION [None]
